FAERS Safety Report 23175465 (Version 1)
Quarter: 2023Q4

REPORT INFORMATION
  Report Type: Spontaneous
  Country: JP (occurrence: JP)
  Receive Date: 20231113
  Receipt Date: 20231113
  Transmission Date: 20240109
  Serious: Yes (Death, Hospitalization, Other)
  Sender: FDA-Public Use
  Company Number: JP-TAKEDA-2023TJP014768

PATIENT
  Age: 38 Year
  Sex: Male

DRUGS (1)
  1. CABOMETYX [Suspect]
     Active Substance: CABOZANTINIB S-MALATE
     Indication: Renal cancer metastatic
     Dosage: 20 MG, QD
     Route: 048
     Dates: start: 20230601, end: 20231001

REACTIONS (3)
  - Death [Fatal]
  - Ascites [Unknown]
  - Mental fatigue [Unknown]
